FAERS Safety Report 6508592-3 (Version None)
Quarter: 2009Q4

REPORT INFORMATION
  Report Type: 
  Country: None (occurrence: None)
  Receive Date: 20091221
  Receipt Date: 20091210
  Transmission Date: 20100525
  Serious: Yes (Other)
  Sender: FDA-Public Use
  Company Number: BR-ELI_LILLY_AND_COMPANY-BR200912002583

PATIENT
  Sex: Female
  Weight: 75 kg

DRUGS (11)
  1. FORTEO [Suspect]
     Indication: OSTEOPOROSIS
     Dosage: 20 UG, DAILY (1/D)
     Route: 058
     Dates: start: 20091116
  2. OMEPRAZOLE [Concomitant]
     Dosage: 40 MG, DAILY (1/D)
     Route: 048
     Dates: start: 19890101
  3. CALCORT [Concomitant]
     Indication: LEPROSY
     Dosage: 6 MG, DAILY (1/D)
     Route: 048
     Dates: start: 19940101
  4. EXODUS [Concomitant]
     Indication: DEPRESSION
     Dosage: 50 MG, DAILY (1/D)
     Route: 048
  5. HYDROCHLOROTHIAZIDE W/LOSARTAN [Concomitant]
     Indication: HYPERTENSION
     Dosage: UNK, DAILY (1/D)
     Route: 048
     Dates: start: 20091001
  6. MELILOTUS OFFICINALIS [Concomitant]
     Indication: ANGIOPATHY
     Dosage: UNK, DAILY (1/D)
     Route: 048
     Dates: start: 20090101
  7. GLUCOSAMINE SULFATE W/CHONDROITIN [Concomitant]
     Indication: ANGIOPATHY
     Dosage: UNK, DAILY (1/D)
     Route: 048
     Dates: start: 20090101
  8. TRAMADOL HYDROCHLORIDE AND ACETAMINOPHEN [Concomitant]
     Indication: ANALGESIC THERAPY
     Dosage: UNK, DAILY (1/D)
     Route: 048
     Dates: start: 20091001
  9. LYRICA [Concomitant]
     Indication: HERPES ZOSTER
     Dosage: 100 MG, DAILY (1/D)
     Route: 048
     Dates: start: 20091001
  10. REMERON [Concomitant]
     Indication: DEPRESSION
     Dosage: 20 MG, DAILY (1/D)
     Route: 048
  11. LORAX [Concomitant]
     Indication: INSOMNIA
     Dosage: 2 MG, DAILY (1/D)
     Route: 048

REACTIONS (7)
  - BLOOD PRESSURE INCREASED [None]
  - DECREASED APPETITE [None]
  - DIZZINESS [None]
  - ERYTHEMA [None]
  - HEADACHE [None]
  - NAUSEA [None]
  - RETCHING [None]
